FAERS Safety Report 7186331-3 (Version None)
Quarter: 2010Q4

REPORT INFORMATION
  Report Type: 
  Country: None (occurrence: None)
  Receive Date: 20101222
  Receipt Date: 20100620
  Transmission Date: 20110411
  Serious: No
  Sender: FDA-Public Use
  Company Number: US-AMGEN-KDL419663

PATIENT

DRUGS (6)
  1. ENBREL [Suspect]
     Indication: PSORIASIS
     Dosage: 50 MG, QWK
     Route: 058
     Dates: start: 20100524
  2. CALCIPOTRIENE [Concomitant]
     Dosage: UNK UNK, UNK
     Dates: start: 20070509
  3. CLOBETASOL [Concomitant]
     Dosage: UNK UNK, UNK
     Dates: start: 20070509
  4. FLUOCINONIDE [Concomitant]
     Dosage: UNK UNK, UNK
     Dates: start: 20090211
  5. CEPHALEXIN MONOHYDRATE [Concomitant]
     Dosage: UNK UNK, UNK
     Dates: start: 20090413, end: 20090513
  6. METHOTREXATE [Concomitant]
     Dosage: UNK UNK, UNK
     Dates: start: 20090615, end: 20091110

REACTIONS (2)
  - AXILLARY MASS [None]
  - OPEN WOUND [None]
